FAERS Safety Report 17421411 (Version 5)
Quarter: 2020Q2

REPORT INFORMATION
  Report Type: Spontaneous
  Country: CA (occurrence: CA)
  Receive Date: 20200214
  Receipt Date: 20200526
  Transmission Date: 20200713
  Serious: Yes (Hospitalization)
  Sender: FDA-Public Use
  Company Number: CA-ACTELION-A-US2018-171928

PATIENT
  Age: 67 Year
  Sex: Female
  Weight: 130.16 kg

DRUGS (19)
  1. AMLODIPINE [Concomitant]
     Active Substance: AMLODIPINE BESYLATE
  2. CELECOXIB. [Concomitant]
     Active Substance: CELECOXIB
  3. VITAMIN D [Concomitant]
     Active Substance: VITAMIN D NOS
  4. ATORVASTATIN [Concomitant]
     Active Substance: ATORVASTATIN
  5. OPSUMIT [Suspect]
     Active Substance: MACITENTAN
     Indication: PULMONARY ARTERIAL HYPERTENSION
     Dosage: 10 MG, QD
     Route: 048
     Dates: start: 20180213
  6. DIGOXIN. [Concomitant]
     Active Substance: DIGOXIN
  7. COUMADIN [Concomitant]
     Active Substance: WARFARIN SODIUM
  8. SITAGLIPTIN [Concomitant]
     Active Substance: SITAGLIPTIN
  9. TYLENOL [Concomitant]
     Active Substance: ACETAMINOPHEN
  10. SPIRONOLACTONE. [Concomitant]
     Active Substance: SPIRONOLACTONE
  11. FERROUS GLUCONATE [Concomitant]
     Active Substance: FERROUS GLUCONATE
  12. MAGLUCATE [Concomitant]
     Active Substance: MAGNESIUM GLUCONATE
  13. BISOPROLOL [Concomitant]
     Active Substance: BISOPROLOL
  14. METFORMIN [Concomitant]
     Active Substance: METFORMIN HYDROCHLORIDE
  15. RAMIPRIL. [Concomitant]
     Active Substance: RAMIPRIL
  16. TADALAFIL. [Concomitant]
     Active Substance: TADALAFIL
  17. PANTOPRAZOLE [Concomitant]
     Active Substance: PANTOPRAZOLE
  18. ZOPICLONE [Concomitant]
     Active Substance: ZOPICLONE
  19. CYCLOBENZAPRINE. [Concomitant]
     Active Substance: CYCLOBENZAPRINE

REACTIONS (7)
  - Pyrexia [Not Recovered/Not Resolved]
  - Bacteraemia [Not Recovered/Not Resolved]
  - Neutropenia [Not Recovered/Not Resolved]
  - Hospitalisation [Unknown]
  - Therapy non-responder [Not Recovered/Not Resolved]
  - Acute myeloid leukaemia [Not Recovered/Not Resolved]
  - Dyspnoea [Not Recovered/Not Resolved]

NARRATIVE: CASE EVENT DATE: 20200129
